FAERS Safety Report 14352725 (Version 4)
Quarter: 2018Q1

REPORT INFORMATION
  Report Type: Spontaneous
  Country: US (occurrence: US)
  Receive Date: 20180104
  Receipt Date: 20180330
  Transmission Date: 20180509
  Serious: Yes (Hospitalization, Other)
  Sender: FDA-Public Use
  Company Number: US-LUNDBECK-DKLU2041772

PATIENT
  Age: 75 Year
  Sex: Female

DRUGS (4)
  1. XANAX [Concomitant]
     Active Substance: ALPRAZOLAM
     Indication: TREMOR
     Route: 065
  2. NORTHERA [Suspect]
     Active Substance: DROXIDOPA
     Indication: AUTONOMIC NEUROPATHY
     Dosage: NO TITRATION
     Route: 048
     Dates: start: 20171211, end: 20180321
  3. NORTHERA [Suspect]
     Active Substance: DROXIDOPA
     Indication: ORTHOSTATIC HYPOTENSION
     Route: 048
     Dates: start: 2017
  4. NORTHERA [Suspect]
     Active Substance: DROXIDOPA
     Indication: HYPOTENSION

REACTIONS (18)
  - Headache [Unknown]
  - Dizziness [Unknown]
  - Femur fracture [Unknown]
  - Joint stiffness [Unknown]
  - Drug ineffective [Recovered/Resolved]
  - Post procedural fever [Unknown]
  - Fatigue [Unknown]
  - Oxygen saturation decreased [Unknown]
  - Disturbance in attention [Unknown]
  - Fall [Unknown]
  - Condition aggravated [Unknown]
  - Autonomic nervous system imbalance [Unknown]
  - Hypotension [Recovered/Resolved]
  - Musculoskeletal stiffness [Unknown]
  - Constipation [Unknown]
  - Diarrhoea [Unknown]
  - Therapeutic response shortened [Unknown]
  - Therapeutic response decreased [Unknown]

NARRATIVE: CASE EVENT DATE: 20180102
